FAERS Safety Report 6469854-1 (Version None)
Quarter: 2009Q4

REPORT INFORMATION
  Report Type: 
  Country: None (occurrence: None)
  Receive Date: 20091203
  Receipt Date: 20071226
  Transmission Date: 20100525
  Serious: Yes (Other)
  Sender: FDA-Public Use
  Company Number: TR-ELI_LILLY_AND_COMPANY-TR200712005100

PATIENT
  Age: 53 Year
  Sex: Female

DRUGS (4)
  1. HUMULIN 70/30 [Suspect]
     Indication: TYPE 2 DIABETES MELLITUS
     Dosage: 42 U, EACH MORNING
     Route: 058
     Dates: start: 19990101
  2. HUMULIN 70/30 [Suspect]
     Dosage: 30 U, EACH EVENING
     Route: 058
     Dates: start: 19990101
  3. METFORMIN HCL [Concomitant]
     Indication: TYPE 2 DIABETES MELLITUS
     Dosage: TWICE DAILY IN THE MORNING AND EVENING
     Route: 048
     Dates: start: 19910101
  4. GLUCOBAY [Concomitant]
     Indication: TYPE 2 DIABETES MELLITUS
     Dosage: TWICE DAILY - MORNING AND EVENING
     Route: 048
     Dates: start: 19920101

REACTIONS (1)
  - MYOCARDIAL INFARCTION [None]
